FAERS Safety Report 23653171 (Version 2)
Quarter: 2024Q1

REPORT INFORMATION
  Report Type: Report from Study
  Country: MX (occurrence: MX)
  Receive Date: 20240320
  Receipt Date: 20240326
  Transmission Date: 20240409
  Serious: Yes (Hospitalization, Other)
  Sender: FDA-Public Use
  Company Number: MX-002147023-NVSC2024MX045141

PATIENT
  Age: 44 Year
  Sex: Male
  Weight: 70 kg

DRUGS (2)
  1. GILENYA [Suspect]
     Active Substance: FINGOLIMOD HYDROCHLORIDE
     Indication: Multiple sclerosis
     Dosage: 1 (0.5 MG), QD
     Route: 048
     Dates: start: 20220810
  2. PREGABALIN [Concomitant]
     Active Substance: PREGABALIN
     Indication: Multiple sclerosis
     Dosage: 1 (75 MG)
     Route: 048

REACTIONS (10)
  - Cystitis [Recovered/Resolved]
  - Asthenia [Recovered/Resolved]
  - Decreased immune responsiveness [Unknown]
  - Hypotension [Unknown]
  - Urinary retention [Recovered/Resolved]
  - Abdominal distension [Recovered/Resolved]
  - Pyrexia [Recovered/Resolved]
  - Multiple sclerosis relapse [Unknown]
  - Asthenia [Unknown]
  - Neurogenic bladder [Not Recovered/Not Resolved]

NARRATIVE: CASE EVENT DATE: 20240217
